FAERS Safety Report 13555365 (Version 6)
Quarter: 2020Q3

REPORT INFORMATION
  Report Type: Report from Study
  Country: ES (occurrence: ES)
  Receive Date: 20170517
  Receipt Date: 20180108
  Transmission Date: 20201105
  Serious: Yes (Hospitalization)
  Sender: FDA-Public Use
  Company Number: ES-BAXTER-2017BAX020861

PATIENT
  Age: 46 Year
  Sex: Male
  Weight: 70.3 kg

DRUGS (1)
  1. TISSEEL (FACTOR XIII CONCENTRATE (HUMAN)\FIBRINOGEN HUMAN\THROMBIN HUMAN) [Suspect]
     Active Substance: APROTININ\CALCIUM CHLORIDE\FIBRINOGEN HUMAN\FACTOR XIII CONCENTRATE (HUMAN)\THROMBIN
     Indication: TISSUE SEALING
     Route: 061
     Dates: start: 20170407, end: 20170407

REACTIONS (2)
  - Hydrocephalus [Recovered/Resolved]
  - Cerebrospinal fluid leakage [Recovered/Resolved]

NARRATIVE: CASE EVENT DATE: 20170508
